FAERS Safety Report 10242885 (Version 3)
Quarter: 2014Q3

REPORT INFORMATION
  Report Type: Spontaneous
  Country: FR (occurrence: FR)
  Receive Date: 20140618
  Receipt Date: 20140807
  Transmission Date: 20150326
  Serious: Yes (Hospitalization, Other)
  Sender: FDA-Public Use
  Company Number: FR-BIOGENIDEC-2014BI048644

PATIENT
  Sex: Male
  Weight: 75 kg

DRUGS (4)
  1. SIBELIUM [Concomitant]
     Active Substance: FLUNARIZINE
     Indication: VERTIGO
     Dates: start: 20060913
  2. FAMPYRA [Concomitant]
     Active Substance: DALFAMPRIDINE
     Indication: MUSCLE SPASTICITY
     Dates: start: 20130511
  3. TYSABRI [Suspect]
     Active Substance: NATALIZUMAB
     Indication: RELAPSING-REMITTING MULTIPLE SCLEROSIS
     Route: 042
     Dates: start: 20070615
  4. SIBELIUM [Concomitant]
     Active Substance: FLUNARIZINE
     Indication: MIGRAINE
     Dates: start: 20060913

REACTIONS (2)
  - Decreased immune responsiveness [Unknown]
  - Lip neoplasm malignant stage unspecified [Recovered/Resolved]

NARRATIVE: CASE EVENT DATE: 20131202
